FAERS Safety Report 10257942 (Version 1)
Quarter: 2014Q2

REPORT INFORMATION
  Report Type: Spontaneous
  Country: US (occurrence: US)
  Receive Date: 20140625
  Receipt Date: 20140625
  Transmission Date: 20141212
  Serious: No
  Sender: FDA-Public Use
  Company Number: US-ASTRAZENECA-2014SE44639

PATIENT
  Age: 59 Year
  Sex: Female
  Weight: 27.7 kg

DRUGS (7)
  1. SYMBICORT [Suspect]
     Indication: ASTHMA
     Dosage: 2 PUFFS BID
     Route: 055
     Dates: start: 201404
  2. VICODIN [Concomitant]
     Dosage: BID
  3. MONTELUKAST [Concomitant]
     Dosage: HS
  4. KETOROLAC [Concomitant]
     Indication: PAIN
     Dosage: DAILY
  5. TEMAZEPAM [Concomitant]
     Indication: SLEEP DISORDER
  6. PANTOPRAZOL [Concomitant]
     Indication: DYSPEPSIA
  7. PANTOPRAZOL [Concomitant]
     Indication: DYSPEPSIA

REACTIONS (10)
  - Oral pain [Not Recovered/Not Resolved]
  - Oral discomfort [Not Recovered/Not Resolved]
  - Vomiting [Unknown]
  - Fatigue [Not Recovered/Not Resolved]
  - Pain [Not Recovered/Not Resolved]
  - Feeling abnormal [Unknown]
  - Fear [Unknown]
  - Arthralgia [Not Recovered/Not Resolved]
  - Pain in extremity [Not Recovered/Not Resolved]
  - Oedema mouth [Not Recovered/Not Resolved]
